FAERS Safety Report 4623092-3 (Version None)
Quarter: 2005Q1

REPORT INFORMATION
  Report Type: 
  Country: None (occurrence: None)
  Receive Date: 20050328
  Receipt Date: 20050328
  Transmission Date: 20050727
  Serious: No
  Sender: FDA-Public Use
  Company Number: None

PATIENT
  Age: 50 Year
  Sex: Male
  Weight: 79.3795 kg

DRUGS (6)
  1. LIPITOR [Suspect]
     Dates: start: 20011001, end: 20031220
  2. CRESTOR [Suspect]
     Dates: start: 20040901, end: 20041220
  3. HYDROCHLOROTHIAZIDE [Concomitant]
  4. DILTIZEM [Concomitant]
  5. VIT C [Concomitant]
  6. FAMOTIDINE [Concomitant]

REACTIONS (9)
  - APHONIA [None]
  - BACK PAIN [None]
  - DYSPHAGIA [None]
  - GASTROOESOPHAGEAL REFLUX DISEASE [None]
  - HEADACHE [None]
  - JOINT SPRAIN [None]
  - NECK PAIN [None]
  - PAIN IN EXTREMITY [None]
  - VOCAL CORD PARALYSIS [None]
